FAERS Safety Report 11535713 (Version 1)
Quarter: 2015Q3

REPORT INFORMATION
  Report Type: Spontaneous
  Country: US (occurrence: US)
  Receive Date: 20150903
  Receipt Date: 20150903
  Transmission Date: 20151125
  Serious: No
  Sender: FDA-Public Use
  Company Number: US-ELI_LILLY_AND_COMPANY-US201104007197

PATIENT
  Sex: Male

DRUGS (3)
  1. HUMALOG MIX75/25 [Suspect]
     Active Substance: INSULIN LISPRO
     Indication: DIABETES MELLITUS
     Dosage: UNK
     Dates: start: 2009
  2. HUMALOG MIX50/50 [Suspect]
     Active Substance: INSULIN LISPRO
     Indication: DIABETES MELLITUS
     Dosage: 55 U, BID
     Dates: start: 201004
  3. VICTOZA [Concomitant]
     Active Substance: LIRAGLUTIDE
     Dosage: 18 U, EACH MORNING
     Dates: start: 201103

REACTIONS (3)
  - Weight decreased [Unknown]
  - Blood glucose increased [Unknown]
  - Weight increased [Unknown]
